FAERS Safety Report 10030890 (Version 1)
Quarter: 2014Q1

REPORT INFORMATION
  Report Type: Spontaneous
  Country: US (occurrence: US)
  Receive Date: 20140323
  Receipt Date: 20140323
  Transmission Date: 20141002
  Serious: No
  Sender: FDA-Public Use
  Company Number: US-ALLERGAN-1315614US

PATIENT
  Sex: Female

DRUGS (2)
  1. LATISSE 0.03% [Suspect]
     Indication: GROWTH OF EYELASHES
     Dosage: 2 GTT, UNK
     Route: 061
     Dates: start: 201305
  2. EYE ITCH RELIEF [Concomitant]
     Indication: EYE PRURITUS
     Route: 047

REACTIONS (4)
  - Wrong technique in drug usage process [Unknown]
  - Scleral hyperaemia [Recovering/Resolving]
  - Eye pruritus [Unknown]
  - Trichorrhexis [Unknown]
